FAERS Safety Report 6040417-5 (Version None)
Quarter: 2009Q1

REPORT INFORMATION
  Report Type: 
  Country: None (occurrence: None)
  Receive Date: 20090116
  Receipt Date: 20080328
  Transmission Date: 20090719
  Serious: No
  Sender: FDA-Public Use
  Company Number: US-BRISTOL-MYERS SQUIBB COMPANY-14106942

PATIENT
  Age: 51 Year
  Sex: Female

DRUGS (5)
  1. ABILIFY [Suspect]
     Indication: BIPOLAR II DISORDER
     Dosage: THERAPY DURATION: GREATER THAN 1 YR.DOSE 15-20MG
     Route: 048
     Dates: start: 20061001, end: 20071113
  2. TRAZODONE HCL [Concomitant]
  3. TRILEPTAL [Concomitant]
  4. EFFEXOR [Concomitant]
  5. BENADRYL [Concomitant]

REACTIONS (2)
  - PANIC ATTACK [None]
  - TARDIVE DYSKINESIA [None]
